FAERS Safety Report 20241467 (Version 2)
Quarter: 2022Q1

REPORT INFORMATION
  Report Type: Spontaneous
  Country: ES (occurrence: ES)
  Receive Date: 20211228
  Receipt Date: 20220301
  Transmission Date: 20220424
  Serious: Yes (Hospitalization)
  Sender: FDA-Public Use
  Company Number: None

PATIENT
  Age: 76 Year
  Sex: Male
  Weight: 71.6 kg

DRUGS (7)
  1. OFEV [Suspect]
     Active Substance: NINTEDANIB
     Indication: Idiopathic pulmonary fibrosis
     Route: 048
     Dates: start: 20210916, end: 20211202
  2. COMIRNATY [Suspect]
     Active Substance: TOZINAMERAN
     Indication: COVID-19 immunisation
     Dosage: THIRD DOSE
     Route: 030
     Dates: start: 20211110, end: 20211110
  3. OMEPRAZOLE [Concomitant]
     Active Substance: OMEPRAZOLE
     Indication: Product used for unknown indication
     Route: 048
     Dates: start: 20210501
  4. ENALAPRIL MYLAN 5 mg COMPRIMIDOS EFG , 60 comprimidos [Concomitant]
     Indication: Product used for unknown indication
     Route: 048
     Dates: start: 20210501
  5. SIMVASTATINA RATIO 10 mg [Concomitant]
     Indication: Product used for unknown indication
     Route: 048
     Dates: start: 20210501
  6. FIXAPROST 50 MICROGRAMOS/ML + 5 MG/ML [Concomitant]
     Indication: Product used for unknown indication
     Route: 047
     Dates: start: 20210501
  7. GANFORT 0,3 MG/ML + 5 MG/ML [Concomitant]
     Indication: Product used for unknown indication
     Route: 047
     Dates: start: 20210501

REACTIONS (1)
  - Angina pectoris [Recovering/Resolving]

NARRATIVE: CASE EVENT DATE: 20211112
